FAERS Safety Report 13837165 (Version 1)
Quarter: 2017Q3

REPORT INFORMATION
  Report Type: Spontaneous
  Country: US (occurrence: US)
  Receive Date: 20170804
  Receipt Date: 20170804
  Transmission Date: 20171127
  Serious: No
  Sender: FDA-Public Use
  Company Number: US-ROCHE-632163

PATIENT
  Age: 47 Year
  Sex: Female

DRUGS (1)
  1. BONIVA [Suspect]
     Active Substance: IBANDRONATE SODIUM
     Indication: OSTEOPOROSIS
     Route: 065

REACTIONS (4)
  - Diarrhoea [Unknown]
  - Abdominal pain [Not Recovered/Not Resolved]
  - Bone pain [Unknown]
  - Pain [Unknown]

NARRATIVE: CASE EVENT DATE: 20090504
